FAERS Safety Report 10530380 (Version 1)
Quarter: 2014Q4

REPORT INFORMATION
  Report Type: Spontaneous
  Country: US (occurrence: None)
  Receive Date: 20141020
  Receipt Date: 20141020
  Transmission Date: 20150528
  Serious: Yes (Other)
  Sender: FDA-Public Use
  Company Number: None

PATIENT
  Age: 49 Year
  Sex: Female
  Weight: 72.58 kg

DRUGS (1)
  1. PROPYLENE GLYCOL [Suspect]
     Active Substance: PROPYLENE GLYCOL
     Indication: DRY EYE
     Dosage: 1 DROP PER EYE FOUR TIMES DAILY INTO THE EYE
     Dates: start: 20140826, end: 20140930

REACTIONS (5)
  - Chest discomfort [None]
  - Throat irritation [None]
  - Reaction to preservatives [None]
  - Eye pruritus [None]
  - Hypersensitivity [None]

NARRATIVE: CASE EVENT DATE: 20140929
